FAERS Safety Report 8096316-0 (Version None)
Quarter: 2012Q1

REPORT INFORMATION
  Report Type: 
  Country: None (occurrence: None)
  Receive Date: 20120129
  Receipt Date: 20111231
  Transmission Date: 20120608
  Serious: No
  Sender: FDA-Public Use
  Company Number: US-ABBOTT-12P-163-0888865-00

PATIENT
  Age: 61 Year
  Sex: Female

DRUGS (11)
  1. METFORMIN HCL [Concomitant]
     Indication: DIABETES MELLITUS
     Route: 048
  2. GLYBURIDE [Concomitant]
     Indication: DIABETES MELLITUS
     Route: 048
  3. CLONAZEPAM [Concomitant]
     Indication: DEPRESSION
     Route: 048
  4. BENAZEPRIL HYDROCHLORIDE [Concomitant]
     Indication: BLOOD PRESSURE
     Route: 048
  5. ASPIRIN [Concomitant]
     Indication: SUPPLEMENTATION THERAPY
     Dosage: DAILY
     Route: 048
  6. PRAVASTATIN [Concomitant]
     Indication: BLOOD CHOLESTEROL INCREASED
     Route: 048
  7. SERTRALINE HYDROCHLORIDE [Concomitant]
     Indication: DEPRESSION
     Route: 048
  8. CLONAZEPAM [Concomitant]
     Indication: ANXIETY
  9. DILTIAZEM HCL [Concomitant]
     Indication: BLOOD PRESSURE
     Route: 048
  10. HUMIRA [Suspect]
     Indication: CROHN'S DISEASE
     Dates: start: 20110315
  11. CLONIDINE [Concomitant]
     Indication: BLOOD PRESSURE
     Route: 048

REACTIONS (3)
  - FALL [None]
  - FOREARM FRACTURE [None]
  - WRIST FRACTURE [None]
